FAERS Safety Report 4620014-6 (Version None)
Quarter: 2005Q1

REPORT INFORMATION
  Report Type: 
  Country: None (occurrence: None)
  Receive Date: 20050321
  Receipt Date: 20050321
  Transmission Date: 20050727
  Serious: Yes (Hospitalization)
  Sender: FDA-Public Use
  Company Number: None

PATIENT
  Sex: Female
  Weight: 55 kg

DRUGS (3)
  1. ETOPOSIDE [Suspect]
     Dosage: 10 MG/KG/DAY CIV ON DAYS 1-4 (TOTAL DOSE IS 40 MG/KG)
     Route: 042
  2. CYTARABINE [Suspect]
     Dosage: 2 G/M2 IV OVER 2 HOURS Q 12 H ON DAYS 1-4 (TOTAL OF 8 DOSES)
  3. G-CSF [Suspect]
     Dosage: 10 MCG/KG/DAY SC BEGINNING ON DAY 14 UNITL PBSC COLLECTION IS COMPLETED OR WBC } 50, 000/MCL
     Route: 058

REACTIONS (9)
  - ABDOMINAL DISTENSION [None]
  - ABDOMINAL PAIN [None]
  - ASCITES [None]
  - CLOSTRIDIAL INFECTION [None]
  - COLITIS [None]
  - ILEUS [None]
  - NAUSEA [None]
  - PLEURAL EFFUSION [None]
  - RETCHING [None]
